FAERS Safety Report 19339076 (Version 1)
Quarter: 2021Q2

REPORT INFORMATION
  Report Type: Spontaneous
  Country: US (occurrence: US)
  Receive Date: 20210530
  Receipt Date: 20210530
  Transmission Date: 20210717
  Serious: Yes (Hospitalization, Other)
  Sender: FDA-Public Use
  Company Number: US-PURDUE-USA-2020-0232349

PATIENT
  Sex: Male

DRUGS (2)
  1. OXYCONTIN [Suspect]
     Active Substance: OXYCODONE HYDROCHLORIDE
     Indication: BACK PAIN
     Dosage: 80 MG, DAILY
     Route: 048
     Dates: start: 2000, end: 200404
  2. HYDROCODONE BITARTRATE (SIMILAR TO NDA 206627) [Suspect]
     Active Substance: HYDROCODONE BITARTRATE
     Indication: BACK PAIN
     Dosage: UNK
     Route: 048

REACTIONS (9)
  - Emotional distress [Unknown]
  - Headache [Unknown]
  - Pain [Unknown]
  - Fall [Unknown]
  - Balance disorder [None]
  - Hangover [Unknown]
  - Drug dependence [Unknown]
  - Drug withdrawal syndrome [Unknown]
  - Dizziness [Unknown]
